FAERS Safety Report 5586616-8 (Version None)
Quarter: 2008Q1

REPORT INFORMATION
  Report Type: 
  Country: None (occurrence: None)
  Receive Date: 20080110
  Receipt Date: 20070924
  Transmission Date: 20080703
  Serious: No
  Sender: FDA-Public Use
  Company Number: US-BAYER-US-2007-035964

PATIENT
  Age: 31 Year
  Sex: Female
  Weight: 71 kg

DRUGS (2)
  1. YAZ [Suspect]
     Indication: CONTRACEPTION
     Route: 048
     Dates: start: 20070901
  2. ZYRTEC [Concomitant]
     Dosage: UNIT DOSE: 10 MG

REACTIONS (5)
  - ABDOMINAL PAIN [None]
  - BLOOD URINE PRESENT [None]
  - INAPPROPRIATE SCHEDULE OF DRUG ADMINISTRATION [None]
  - RASH GENERALISED [None]
  - WHITE BLOOD CELL COUNT INCREASED [None]
